FAERS Safety Report 13842158 (Version 2)
Quarter: 2017Q3

REPORT INFORMATION
  Report Type: Spontaneous
  Country: US (occurrence: US)
  Receive Date: 20170807
  Receipt Date: 20170915
  Transmission Date: 20171127
  Serious: Yes (Other)
  Sender: FDA-Public Use
  Company Number: US-GILEAD-2017-0286857

PATIENT
  Age: 77 Year
  Sex: Male
  Weight: 82.86 kg

DRUGS (5)
  1. AMLODIPIN/ATORVASTATIN [Concomitant]
     Active Substance: AMLODIPINE BESYLATE\ATORVASTATIN CALCIUM
     Dosage: 5 DF, UNK
     Route: 048
     Dates: start: 201612, end: 201703
  2. METOPROLOL. [Concomitant]
     Active Substance: METOPROLOL
     Dosage: 25 MG, BID
     Route: 048
     Dates: start: 201612
  3. SUPER GREENS [Suspect]
     Active Substance: DIETARY SUPPLEMENT
     Indication: PRODUCT USED FOR UNKNOWN INDICATION
     Dosage: UNK
     Route: 065
     Dates: start: 201703, end: 20170613
  4. MELATONIN [Concomitant]
     Active Substance: MELATONIN
     Dosage: 1 MG, UNK
     Route: 048
  5. VIREAD [Suspect]
     Active Substance: TENOFOVIR DISOPROXIL FUMARATE
     Indication: CHRONIC HEPATITIS B
     Dosage: 300 MG, UNK
     Route: 048
     Dates: start: 20170504, end: 20170707

REACTIONS (2)
  - Aspartate aminotransferase increased [Recovered/Resolved]
  - Alanine aminotransferase abnormal [Recovered/Resolved]

NARRATIVE: CASE EVENT DATE: 20170607
